FAERS Safety Report 4870381-3 (Version None)
Quarter: 2005Q4

REPORT INFORMATION
  Report Type: 
  Country: None (occurrence: None)
  Receive Date: 20051228
  Receipt Date: 20051212
  Transmission Date: 20060501
  Serious: Yes (Other)
  Sender: FDA-Public Use
  Company Number: US200512002032

PATIENT
  Age: 3 Year
  Sex: 0

DRUGS (1)
  1. PROZAC [Suspect]
     Dosage: TRANSPLACENTAL
     Route: 064

REACTIONS (6)
  - CAESAREAN SECTION [None]
  - CONVULSION [None]
  - DRUG EXPOSURE DURING PREGNANCY [None]
  - DRUG EXPOSURE VIA BREAST MILK [None]
  - GRAND MAL CONVULSION [None]
  - MYOCLONIC EPILEPSY [None]
